FAERS Safety Report 18188684 (Version 1)
Quarter: 2020Q3

REPORT INFORMATION
  Report Type: Spontaneous
  Country: BE (occurrence: BE)
  Receive Date: 20200824
  Receipt Date: 20200824
  Transmission Date: 20201103
  Serious: Yes (Hospitalization, Other)
  Sender: FDA-Public Use
  Company Number: BE-AMNEAL PHARMACEUTICALS-2020-AMRX-02554

PATIENT
  Age: 82 Year
  Sex: Female

DRUGS (1)
  1. ACYCLOVIR. [Suspect]
     Active Substance: ACYCLOVIR
     Indication: VARICELLA ZOSTER VIRUS INFECTION
     Dosage: 800 MILLIGRAM, 3 /DAY
     Route: 042

REACTIONS (3)
  - Speech disorder [Recovered/Resolved]
  - Blood creatinine increased [Recovered/Resolved]
  - Psychomotor hyperactivity [Recovered/Resolved]
